FAERS Safety Report 5858209-6 (Version None)
Quarter: 2008Q3

REPORT INFORMATION
  Report Type: 
  Country: None (occurrence: None)
  Receive Date: 20080818
  Receipt Date: 20080602
  Transmission Date: 20090109
  Serious: No
  Sender: FDA-Public Use
  Company Number: TPA2008A00829

PATIENT
  Age: 49 Year
  Sex: Male
  Weight: 77.1115 kg

DRUGS (7)
  1. ROZEREM [Suspect]
     Indication: INSOMNIA
     Dosage: 8 MG, QHS PRN, PER ORAL
     Route: 048
     Dates: start: 20080501
  2. AMBIEN [Suspect]
     Indication: INSOMNIA
     Dosage: 5 MG, 1 IN 1 D, PER ORAL
     Route: 048
     Dates: start: 19950101, end: 20080101
  3. AMBIEN [Suspect]
     Indication: INSOMNIA
     Dosage: 5 MG, 1 IN 1 D, PER ORAL
     Route: 048
     Dates: start: 20080530
  4. MULTIVITAMIN [Concomitant]
  5. CLONAZEPAM [Concomitant]
  6. . [Concomitant]
  7. . [Concomitant]

REACTIONS (3)
  - DIZZINESS [None]
  - FATIGUE [None]
  - SOMNOLENCE [None]
